FAERS Safety Report 6719455-2 (Version None)
Quarter: 2010Q2

REPORT INFORMATION
  Report Type: 
  Country: None (occurrence: None)
  Receive Date: 20100510
  Receipt Date: 20100510
  Transmission Date: 20101027
  Serious: No
  Sender: FDA-Public Use
  Company Number: None

PATIENT
  Age: 55 Year
  Sex: Female
  Weight: 63.5036 kg

DRUGS (1)
  1. BONIVA [Suspect]
     Indication: OSTEOPENIA
     Dosage: 150MG MONTHLY
     Dates: start: 20090523, end: 20091123

REACTIONS (9)
  - ARTHRALGIA [None]
  - BACK PAIN [None]
  - DYSPEPSIA [None]
  - HAEMOGLOBIN DECREASED [None]
  - PAIN IN JAW [None]
  - PLANTAR FASCIITIS [None]
  - PLATELET COUNT DECREASED [None]
  - POISONING [None]
  - TOOTHACHE [None]
